FAERS Safety Report 7597260-5 (Version None)
Quarter: 2011Q3

REPORT INFORMATION
  Report Type: 
  Country: None (occurrence: None)
  Receive Date: 20110708
  Receipt Date: 20110119
  Transmission Date: 20111222
  Serious: No
  Sender: FDA-Public Use
  Company Number: US-GLAXOSMITHKLINE-A0907370A

PATIENT
  Sex: Female

DRUGS (1)
  1. FLOVENT [Suspect]
     Route: 055

REACTIONS (1)
  - ORAL DISCOMFORT [None]
